FAERS Safety Report 9948703 (Version 1)
Quarter: 2014Q1

REPORT INFORMATION
  Report Type: Spontaneous
  Country: US (occurrence: US)
  Receive Date: 20140303
  Receipt Date: 20140303
  Transmission Date: 20141002
  Serious: No
  Sender: FDA-Public Use
  Company Number: US-ABBVIE-13P-163-1058350-00

PATIENT
  Age: 57 Year
  Sex: Female
  Weight: 65.83 kg

DRUGS (9)
  1. HUMIRA [Suspect]
     Indication: RHEUMATOID ARTHRITIS
  2. PREDNISONE [Concomitant]
     Indication: RASH GENERALISED
  3. SYMPONI [Concomitant]
     Indication: RHEUMATOID ARTHRITIS
  4. ACTONEL [Concomitant]
     Indication: PRODUCT USED FOR UNKNOWN INDICATION
  5. FOLIC ACID [Concomitant]
     Indication: PRODUCT USED FOR UNKNOWN INDICATION
  6. NEURONTIN [Concomitant]
     Indication: PRODUCT USED FOR UNKNOWN INDICATION
  7. LEFLUNAMIDE [Concomitant]
     Indication: PRODUCT USED FOR UNKNOWN INDICATION
  8. PLAQUENIL [Concomitant]
     Indication: PRODUCT USED FOR UNKNOWN INDICATION
  9. VITAMIN D3 [Concomitant]
     Indication: PRODUCT USED FOR UNKNOWN INDICATION

REACTIONS (5)
  - Drug administered at inappropriate site [Recovered/Resolved]
  - Pruritus [Recovering/Resolving]
  - Rash generalised [Recovering/Resolving]
  - Injection site reaction [Not Recovered/Not Resolved]
  - Rash [Recovering/Resolving]
